FAERS Safety Report 5043420-7 (Version None)
Quarter: 2006Q2

REPORT INFORMATION
  Report Type: 
  Country: None (occurrence: None)
  Receive Date: 20060629
  Receipt Date: 20060614
  Transmission Date: 20061013
  Serious: Yes (Hospitalization, Other)
  Sender: FDA-Public Use
  Company Number: 2006RR-02613

PATIENT
  Age: 83 Year
  Sex: Female

DRUGS (2)
  1. FLUOXETINE [Suspect]
     Dosage: 20 MG, QD
  2. ASPIRIN [Suspect]
     Dosage: 30 MG, QD

REACTIONS (4)
  - ELECTROCARDIOGRAM QT PROLONGED [None]
  - LOSS OF CONSCIOUSNESS [None]
  - SYNCOPE [None]
  - TORSADE DE POINTES [None]
